FAERS Safety Report 4606371-5 (Version None)
Quarter: 2005Q2

REPORT INFORMATION
  Report Type: 
  Country: None (occurrence: None)
  Receive Date: 20050303
  Receipt Date: 20050119
  Transmission Date: 20051028
  Serious: No
  Sender: FDA-Public Use
  Company Number: 200510089BWH

PATIENT
  Sex: Male

DRUGS (4)
  1. LEVITRA [Suspect]
     Indication: ERECTILE DYSFUNCTION
  2. CARBIDOPA AND LEVODOPA [Concomitant]
  3. AMANTADINE [Concomitant]
  4. METOLAZONE [Concomitant]

REACTIONS (1)
  - ERECTILE DYSFUNCTION [None]
